FAERS Safety Report 23794913 (Version 1)
Quarter: 2024Q2

REPORT INFORMATION
  Report Type: Spontaneous
  Country: CA (occurrence: CA)
  Receive Date: 20240429
  Receipt Date: 20240429
  Transmission Date: 20240716
  Serious: Yes (Other)
  Sender: FDA-Public Use
  Company Number: CA-B.Braun Medical Inc.-2156202

PATIENT

DRUGS (2)
  1. SODIUM CHLORIDE [Suspect]
     Active Substance: SODIUM CHLORIDE
  2. GADOBUTROL [Suspect]
     Active Substance: GADOBUTROL

REACTIONS (1)
  - Drug eruption [Unknown]
